FAERS Safety Report 5460423-9 (Version None)
Quarter: 2007Q3

REPORT INFORMATION
  Report Type: 
  Country: None (occurrence: None)
  Receive Date: 20070919
  Receipt Date: 20070717
  Transmission Date: 20080115
  Serious: Yes (Other)
  Sender: FDA-Public Use
  Company Number: US-ASTRAZENECA-2007UW15090

PATIENT
  Age: 8539 Day
  Sex: Female
  Weight: 59.1 kg

DRUGS (12)
  1. SEROQUEL [Suspect]
     Indication: BIPOLAR DISORDER
     Route: 048
     Dates: start: 20050719, end: 20070531
  2. LITHIUM [Concomitant]
     Indication: BIPOLAR DISORDER
     Route: 048
  3. AMBIEN [Concomitant]
     Route: 048
  4. AMBIEN [Concomitant]
     Route: 048
  5. WELLBUTRIN [Concomitant]
     Route: 048
  6. ABILIFY [Concomitant]
  7. BIRTH CONTROL PILLS [Concomitant]
  8. RESTORIL [Concomitant]
     Route: 048
  9. TEGRETOL [Concomitant]
  10. TOPAMAX [Concomitant]
  11. DEPAKOTE [Concomitant]
  12. CELEXA [Concomitant]

REACTIONS (1)
  - PANCREATITIS [None]
